FAERS Safety Report 17592114 (Version 4)
Quarter: 2020Q3

REPORT INFORMATION
  Report Type: Report from Study
  Country: US (occurrence: US)
  Receive Date: 20200327
  Receipt Date: 20200604
  Transmission Date: 20201105
  Serious: Yes (Other)
  Sender: FDA-Public Use
  Company Number: NVSC2020US080563

PATIENT
  Age: 5 Year
  Sex: Male
  Weight: 15.2 kg

DRUGS (33)
  1. ACTEMRA [Suspect]
     Active Substance: TOCILIZUMAB
     Dosage: 180 MG, UNK
     Route: 065
     Dates: start: 20171009, end: 20180429
  2. PREDNISOLONE. [Concomitant]
     Active Substance: PREDNISOLONE
     Dosage: UNK, QD (5 STEP WEEKLY TAPER STARTED TO GET DOWN TO 3.5 ML DAILY)
     Route: 065
     Dates: start: 20180502
  3. ANAKINRA [Concomitant]
     Active Substance: ANAKINRA
     Dosage: 45 MG, UNK
     Route: 065
     Dates: start: 20140807, end: 20150401
  4. IBUPROFEN. [Concomitant]
     Active Substance: IBUPROFEN
     Indication: PRODUCT USED FOR UNKNOWN INDICATION
     Dosage: 80 MG, UNK
     Route: 065
     Dates: start: 20140327, end: 20140328
  5. IBUPROFEN. [Concomitant]
     Active Substance: IBUPROFEN
     Dosage: 80 MG, UNK
     Route: 065
     Dates: start: 20140407, end: 20140411
  6. METHOTREXATE SODIUM. [Suspect]
     Active Substance: METHOTREXATE SODIUM
     Indication: PRODUCT USED FOR UNKNOWN INDICATION
     Dosage: 5 MG, UNK
     Route: 058
     Dates: start: 20140524, end: 20140907
  7. CEFDINIR. [Concomitant]
     Active Substance: CEFDINIR
     Indication: DRUG HYPERSENSITIVITY
     Dosage: UNK, QD
     Route: 065
  8. ANAKINRA [Concomitant]
     Active Substance: ANAKINRA
     Indication: PRODUCT USED FOR UNKNOWN INDICATION
     Dosage: 30 MG, UNK
     Route: 065
     Dates: start: 20140409, end: 20140806
  9. NAPROXEN. [Concomitant]
     Active Substance: NAPROXEN
     Dosage: 125 MG, UNK
     Route: 065
     Dates: start: 20160128, end: 20160925
  10. ILARIS [Suspect]
     Active Substance: CANAKINUMAB
     Dosage: 75 MG, UNK
     Route: 065
     Dates: start: 20160115, end: 20160406
  11. ILARIS [Suspect]
     Active Substance: CANAKINUMAB
     Dosage: 100 MG, UNK
     Route: 065
     Dates: start: 20190423
  12. PROGRAF [Suspect]
     Active Substance: TACROLIMUS
     Indication: PRODUCT USED FOR UNKNOWN INDICATION
     Dosage: 1.5 MG, UNK
     Route: 065
     Dates: start: 20180103, end: 20180319
  13. PREDNISOLONE. [Concomitant]
     Active Substance: PREDNISOLONE
     Indication: STILL^S DISEASE
     Dosage: 2.25 MG, QD
     Route: 065
     Dates: start: 20171107
  14. PREDNISOLONE. [Concomitant]
     Active Substance: PREDNISOLONE
     Dosage: 24 MG, QD
     Route: 065
     Dates: start: 20180423
  15. IMMUNE GLOBULIN NOS [Concomitant]
     Active Substance: IMMUNE GLOBULIN NOS
     Dosage: 2 OT, UNK
     Route: 065
     Dates: start: 20190715
  16. MELOXICAM. [Concomitant]
     Active Substance: MELOXICAM
     Indication: PRODUCT USED FOR UNKNOWN INDICATION
     Dosage: 3.75 MG
     Route: 065
     Dates: start: 20170313, end: 20171009
  17. METHOTREXATE SODIUM. [Suspect]
     Active Substance: METHOTREXATE SODIUM
     Dosage: 10 MG, UNK
     Route: 065
     Dates: start: 20160502
  18. NAPROXEN. [Concomitant]
     Active Substance: NAPROXEN
     Dosage: 100 MG, UNK
     Route: 065
     Dates: start: 20150908, end: 20160127
  19. NAPROXEN. [Concomitant]
     Active Substance: NAPROXEN
     Indication: PRODUCT USED FOR UNKNOWN INDICATION
     Dosage: 90 MG, UNK
     Route: 065
     Dates: start: 20140408, end: 20140904
  20. ILARIS [Suspect]
     Active Substance: CANAKINUMAB
     Indication: STILL^S DISEASE
     Dosage: 42 MG, UNK
     Route: 065
     Dates: start: 20150410, end: 20160114
  21. ILARIS [Suspect]
     Active Substance: CANAKINUMAB
     Dosage: 100 MG, UNK
     Route: 065
     Dates: start: 20160407, end: 20161110
  22. ILARIS [Suspect]
     Active Substance: CANAKINUMAB
     Dosage: 75 MG, UNK
     Route: 065
     Dates: start: 20180430, end: 20190423
  23. METHOTREXATE SODIUM. [Suspect]
     Active Substance: METHOTREXATE SODIUM
     Dosage: 7.5 MG, UNK
     Route: 065
     Dates: start: 20140908, end: 20150607
  24. METHOTREXATE SODIUM. [Suspect]
     Active Substance: METHOTREXATE SODIUM
     Dosage: 7.5 MG, UNK
     Route: 065
     Dates: start: 20150608, end: 20160501
  25. AMOXICILLIN. [Concomitant]
     Active Substance: AMOXICILLIN
     Indication: DRUG HYPERSENSITIVITY
     Dosage: UNK
     Route: 065
  26. CELLCEPT [Concomitant]
     Active Substance: MYCOPHENOLATE MOFETIL\MYCOPHENOLATE MOFETIL HYDROCHLORIDE
     Indication: PRODUCT USED FOR UNKNOWN INDICATION
     Dosage: UNK
     Route: 065
  27. ACTEMRA [Suspect]
     Active Substance: TOCILIZUMAB
     Dosage: 160 MG, UNK
     Route: 065
     Dates: start: 20161219, end: 20171008
  28. MYCOPHENOLATE MOFETIL. [Concomitant]
     Active Substance: MYCOPHENOLATE MOFETIL
     Dosage: 450 MG, UNK
     Route: 065
     Dates: start: 20200316
  29. PREDNISOLONE. [Concomitant]
     Active Substance: PREDNISOLONE
     Dosage: 30 MG, QD
     Route: 065
     Dates: start: 20180314
  30. IMMUNE GLOBULIN NOS [Concomitant]
     Active Substance: IMMUNE GLOBULIN NOS
     Indication: PRODUCT USED FOR UNKNOWN INDICATION
     Dosage: 18 MG, UNK
     Route: 065
     Dates: start: 20140407, end: 20140407
  31. ACTEMRA [Suspect]
     Active Substance: TOCILIZUMAB
     Indication: PRODUCT USED FOR UNKNOWN INDICATION
     Dosage: 100 MG, UNK
     Route: 065
     Dates: start: 20161111, end: 20161218
  32. MYCOPHENOLATE MOFETIL. [Concomitant]
     Active Substance: MYCOPHENOLATE MOFETIL
     Indication: PRODUCT USED FOR UNKNOWN INDICATION
     Dosage: 400 MG, UNK
     Route: 065
     Dates: start: 20190712, end: 20200316
  33. ANAKINRA [Concomitant]
     Active Substance: ANAKINRA
     Dosage: 75 MG, UNK
     Route: 065
     Dates: start: 20150402, end: 20150410

REACTIONS (9)
  - Actinomyces test positive [Unknown]
  - Interstitial lung disease [Not Recovered/Not Resolved]
  - Staphylococcal infection [Unknown]
  - Platelet count increased [Unknown]
  - Pulmonary fibrosis [Unknown]
  - Bronchiectasis [Unknown]
  - Blood immunoglobulin G decreased [Unknown]
  - Hypogammaglobulinaemia [Unknown]
  - Blood fibrinogen decreased [Unknown]

NARRATIVE: CASE EVENT DATE: 20180312
